FAERS Safety Report 8507574 (Version 5)
Quarter: 2013Q2

REPORT INFORMATION
  Report Type: Spontaneous
  Country: US (occurrence: US)
  Receive Date: 20120412
  Receipt Date: 20130422
  Transmission Date: 20140414
  Serious: Yes (Hospitalization)
  Sender: FDA-Public Use
  Company Number: US-ASTRAZENECA-2012SE13745

PATIENT
  Age: 62 Year
  Sex: Female

DRUGS (1)
  1. NEXIUM [Suspect]
     Route: 048

REACTIONS (9)
  - Diabetes mellitus [Unknown]
  - Blood glucose increased [Unknown]
  - Gastrooesophageal reflux disease [Unknown]
  - Psoriasis [Unknown]
  - Ulcer [Not Recovered/Not Resolved]
  - Pain [Unknown]
  - Headache [Unknown]
  - Flatulence [Unknown]
  - Drug dose omission [Unknown]
